FAERS Safety Report 17129771 (Version 5)
Quarter: 2020Q1

REPORT INFORMATION
  Report Type: Spontaneous
  Country: BR (occurrence: BR)
  Receive Date: 20191209
  Receipt Date: 20200121
  Transmission Date: 20200409
  Serious: Yes (Death, Other)
  Sender: FDA-Public Use
  Company Number: BR-SA-2019SA339988

PATIENT
  Age: 27 Year
  Sex: Female

DRUGS (1)
  1. LEMTRADA [Suspect]
     Active Substance: ALEMTUZUMAB
     Dosage: UNK UNK, UNK
     Route: 065

REACTIONS (5)
  - Cerebrovascular accident [Fatal]
  - Nephrotic syndrome [Unknown]
  - Coma [Unknown]
  - Thrombocytopenia [Unknown]
  - Purpura [Unknown]

NARRATIVE: CASE EVENT DATE: 2019
